FAERS Safety Report 5674082-3 (Version None)
Quarter: 2008Q2

REPORT INFORMATION
  Report Type: 
  Country: None (occurrence: None)
  Receive Date: 20080227
  Receipt Date: 20070730
  Transmission Date: 20081010
  Serious: Yes (Death)
  Sender: FDA-Public Use
  Company Number: HQWYE299431JUL07

PATIENT
  Age: 50 Year
  Sex: Male

DRUGS (1)
  1. EFFEXOR [Suspect]
     Dosage: ORAL
     Route: 048
     Dates: start: 20060808

REACTIONS (1)
  - COMPLETED SUICIDE [None]
